FAERS Safety Report 19071927 (Version 2)
Quarter: 2021Q2

REPORT INFORMATION
  Report Type: Spontaneous
  Country: TR (occurrence: TR)
  Receive Date: 20210330
  Receipt Date: 20210406
  Transmission Date: 20210717
  Serious: Yes (Other)
  Sender: FDA-Public Use
  Company Number: TR-TEVA-2021-TR-1897112

PATIENT
  Age: 52 Year
  Sex: Female

DRUGS (2)
  1. METHOTREXATE. [Suspect]
     Active Substance: METHOTREXATE
     Indication: PITYRIASIS RUBRA PILARIS
     Dosage: 15 MG, Q WEEK
     Route: 065
  2. ACITRETIN UNK [Suspect]
     Active Substance: ACITRETIN
     Indication: PITYRIASIS RUBRA PILARIS
     Dosage: .5 MG/KG DAILY; 0.5 MG/KG, QD
     Route: 065

REACTIONS (2)
  - Skin lesion [Recovered/Resolved]
  - Hepatic function abnormal [Unknown]
